FAERS Safety Report 5051141-X (Version None)
Quarter: 2006Q3

REPORT INFORMATION
  Report Type: 
  Country: None (occurrence: None)
  Receive Date: 20060714
  Receipt Date: 20060629
  Transmission Date: 20061208
  Serious: Yes (Other)
  Sender: FDA-Public Use
  Company Number: GBWYE472215MAR06

PATIENT
  Sex: Female

DRUGS (3)
  1. ENBREL [Suspect]
     Indication: DRUG USE FOR UNKNOWN INDICATION
     Route: 058
     Dates: start: 20031101
  2. SOLPADOL [Concomitant]
     Dosage: 1-2 TABLETS FREQUENCY UNKNOWN
     Route: 048
     Dates: end: 20060301
  3. UNSPECIFIED CONTRACEPTIVE [Concomitant]
     Dates: end: 20060301

REACTIONS (3)
  - ABORTION SPONTANEOUS [None]
  - DRUG EXPOSURE DURING PREGNANCY [None]
  - PREGNANCY [None]
